FAERS Safety Report 12086049 (Version 1)
Quarter: 2016Q1

REPORT INFORMATION
  Report Type: Spontaneous
  Country: US (occurrence: US)
  Receive Date: 20160217
  Receipt Date: 20160217
  Transmission Date: 20160526
  Serious: No
  Sender: FDA-Public Use
  Company Number: US-AQUA-2015AQU000069

PATIENT
  Age: 15 Year
  Sex: Male
  Weight: 72.56 kg

DRUGS (2)
  1. ACTICLATE [Suspect]
     Active Substance: DOXYCYCLINE HYCLATE
     Indication: ACNE
     Dosage: 150 MG, UNK
     Route: 048
     Dates: start: 201511, end: 20151105
  2. VITAMIN D3 [Suspect]
     Active Substance: CHOLECALCIFEROL

REACTIONS (2)
  - Inappropriate schedule of drug administration [Recovered/Resolved]
  - Headache [Recovered/Resolved]

NARRATIVE: CASE EVENT DATE: 201511
